FAERS Safety Report 24283014 (Version 1)
Quarter: 2024Q3

REPORT INFORMATION
  Report Type: Spontaneous
  Country: GB (occurrence: GB)
  Receive Date: 20240904
  Receipt Date: 20240904
  Transmission Date: 20241017
  Serious: Yes (Hospitalization, Disabling, Other)
  Sender: TEVA
  Company Number: None

PATIENT
  Age: 33 Year
  Sex: Male
  Weight: 65 kg

DRUGS (1)
  1. MIRTAZAPINE [Suspect]
     Active Substance: MIRTAZAPINE
     Dosage: NIGHTLY,
     Route: 065
     Dates: start: 20220823

REACTIONS (6)
  - Tachycardia [Not Recovered/Not Resolved]
  - Weight increased [Not Recovered/Not Resolved]
  - Anger [Not Recovered/Not Resolved]
  - Medication error [Unknown]
  - Irritability [Not Recovered/Not Resolved]
  - Affect lability [Not Recovered/Not Resolved]

NARRATIVE: CASE EVENT DATE: 20230101
